FAERS Safety Report 25346465 (Version 2)
Quarter: 2025Q3

REPORT INFORMATION
  Report Type: Spontaneous
  Country: EU (occurrence: EU)
  Receive Date: 20250522
  Receipt Date: 20250807
  Transmission Date: 20251020
  Serious: Yes (Disabling)
  Sender: CHEPLAPHARM
  Company Number: None

PATIENT
  Age: 20 Year
  Sex: Male

DRUGS (4)
  1. OLANZAPINE [Suspect]
     Active Substance: OLANZAPINE
     Indication: Product used for unknown indication
     Route: 048
     Dates: start: 1998, end: 1998
  2. LYSERGIDE [Suspect]
     Active Substance: LYSERGIDE
  3. CANNABIS SATIVA SUBSP. INDICA TOP [Suspect]
     Active Substance: CANNABIS SATIVA SUBSP. INDICA TOP
  4. HERBALS [Suspect]
     Active Substance: HERBALS

REACTIONS (10)
  - Type 2 diabetes mellitus [Recovered/Resolved]
  - Metabolic disorder [Not Recovered/Not Resolved]
  - Substance use [Not Recovered/Not Resolved]
  - Weight increased [Not Recovered/Not Resolved]
  - Asthenia [Not Recovered/Not Resolved]
  - Anhedonia [Not Recovered/Not Resolved]
  - Flat affect [Not Recovered/Not Resolved]
  - Neurological symptom [Not Recovered/Not Resolved]
  - Emotional disorder [Not Recovered/Not Resolved]
  - Nervous system disorder [Unknown]

NARRATIVE: CASE EVENT DATE: 19980101
